FAERS Safety Report 12606025 (Version 5)
Quarter: 2016Q4

REPORT INFORMATION
  Report Type: Spontaneous
  Country: US (occurrence: US)
  Receive Date: 20160729
  Receipt Date: 20161006
  Transmission Date: 20170207
  Serious: No
  Sender: FDA-Public Use
  Company Number: US-PFIZER INC-2016332106

PATIENT
  Age: 76 Year
  Sex: Female

DRUGS (2)
  1. XELJANZ XR [Suspect]
     Active Substance: TOFACITINIB CITRATE
     Indication: RHEUMATOID ARTHRITIS
     Dosage: 11 MG, 1X/DAY
  2. XELJANZ XR [Suspect]
     Active Substance: TOFACITINIB CITRATE
     Dosage: 11 MG, DAILY

REACTIONS (6)
  - Physical product label issue [Recovered/Resolved]
  - Nasopharyngitis [Recovered/Resolved]
  - Infection [Recovered/Resolved]
  - Anxiety [Recovered/Resolved]
  - Rhinorrhoea [Recovered/Resolved]
  - Malaise [Recovered/Resolved]
